FAERS Safety Report 26017601 (Version 1)
Quarter: 2025Q4

REPORT INFORMATION
  Report Type: Spontaneous
  Country: EU (occurrence: EU)
  Receive Date: 20251110
  Receipt Date: 20251110
  Transmission Date: 20260118
  Serious: Yes (Death, Other)
  Sender: AMGEN
  Company Number: EU-AMGEN-GRCSP2025220181

PATIENT
  Age: 50 Year
  Sex: Female

DRUGS (7)
  1. BLINATUMOMAB [Suspect]
     Active Substance: BLINATUMOMAB
     Indication: B-cell type acute leukaemia
     Dosage: 4 CYCLES
     Route: 065
  2. BLINATUMOMAB [Suspect]
     Active Substance: BLINATUMOMAB
     Indication: Minimal residual disease
  3. METHOTREXATE [Concomitant]
     Active Substance: METHOTREXATE
     Dosage: 10 INJECTIONS
     Route: 029
  4. THIOTEPA [Concomitant]
     Active Substance: THIOTEPA
  5. Busulfan;Fludarabine [Concomitant]
  6. GRAFALON [Concomitant]
     Active Substance: LAPINE T-LYMPHOCYTE IMMUNE GLOBULIN
     Indication: Prophylaxis against graft versus host disease
  7. MYCOPHENOLATE MOFETIL [Concomitant]
     Active Substance: MYCOPHENOLATE MOFETIL
     Indication: Prophylaxis against graft versus host disease

REACTIONS (14)
  - Human herpesvirus 6 encephalitis [Fatal]
  - Acute graft versus host disease in skin [Unknown]
  - Acute graft versus host disease [Unknown]
  - Acute graft versus host disease in intestine [Unknown]
  - Paraproteinaemia [Unknown]
  - Gastritis viral [Unknown]
  - Epstein-Barr viraemia [Unknown]
  - Cytomegalovirus viraemia [Unknown]
  - Thrombocytopenia [Unknown]
  - Hypergammaglobulinaemia [Unknown]
  - General physical health deterioration [Unknown]
  - COVID-19 [Unknown]
  - BK virus infection [Unknown]
  - Cystitis viral [Unknown]
